FAERS Safety Report 25319255 (Version 1)
Quarter: 2025Q2

REPORT INFORMATION
  Report Type: Spontaneous
  Country: US (occurrence: US)
  Receive Date: 20250515
  Receipt Date: 20250515
  Transmission Date: 20250717
  Serious: Yes (Other)
  Sender: PFIZER
  Company Number: US-PFIZER INC-PV202500057647

PATIENT
  Age: 28 Year
  Sex: Female

DRUGS (7)
  1. SOLU-MEDROL [Suspect]
     Active Substance: METHYLPREDNISOLONE SODIUM SUCCINATE
     Route: 042
     Dates: start: 20250302
  2. BACLOFEN [Concomitant]
     Active Substance: BACLOFEN
  3. OCREVUS [Concomitant]
     Active Substance: OCRELIZUMAB
  4. BUSPIRONE [Concomitant]
     Active Substance: BUSPIRONE HYDROCHLORIDE
  5. GABAPENTIN [Concomitant]
     Active Substance: GABAPENTIN
  6. IBUPROFEN [Concomitant]
     Active Substance: IBUPROFEN
  7. TYLENOL [Concomitant]
     Active Substance: ACETAMINOPHEN

REACTIONS (10)
  - Hypertension [Unknown]
  - Multiple sclerosis [Unknown]
  - Speech disorder [Not Recovered/Not Resolved]
  - Anxiety [Unknown]
  - Brain fog [Not Recovered/Not Resolved]
  - Confusional state [Not Recovered/Not Resolved]
  - Pain [Unknown]
  - Heart rate increased [Unknown]
  - Visual impairment [Unknown]
  - Headache [Not Recovered/Not Resolved]

NARRATIVE: CASE EVENT DATE: 20250302
